FAERS Safety Report 15610593 (Version 1)
Quarter: 2018Q4

REPORT INFORMATION
  Report Type: Spontaneous
  Country: US (occurrence: US)
  Receive Date: 20181113
  Receipt Date: 20181113
  Transmission Date: 20190205
  Serious: Yes (Other)
  Sender: FDA-Public Use
  Company Number: US-ROCHE-2025221

PATIENT
  Sex: Female
  Weight: 11.1 kg

DRUGS (3)
  1. TAXOTERE [Concomitant]
     Active Substance: DOCETAXEL
  2. PERTUZUMAB. [Concomitant]
     Active Substance: PERTUZUMAB
     Route: 065
  3. HERCEPTIN [Suspect]
     Active Substance: TRASTUZUMAB
     Indication: BREAST CANCER
     Dosage: ONGOING: UNKNOWN
     Route: 042

REACTIONS (3)
  - Chest pain [Recovered/Resolved]
  - Back pain [Unknown]
  - Chills [Recovered/Resolved]

NARRATIVE: CASE EVENT DATE: 20171113
